FAERS Safety Report 7562174-3 (Version None)
Quarter: 2011Q2

REPORT INFORMATION
  Report Type: 
  Country: None (occurrence: None)
  Receive Date: 20110614
  Receipt Date: 20110601
  Transmission Date: 20111010
  Serious: Yes (Hospitalization, Other)
  Sender: FDA-Public Use
  Company Number: 2011MA006658

PATIENT
  Age: 82 Year
  Sex: Male

DRUGS (1)
  1. EPIRUBICIN HYDROCHLORIDE [Suspect]
     Indication: BLADDER NEOPLASM
     Dosage: 50 ML;IVES
     Route: 043

REACTIONS (7)
  - ABDOMINAL DISTENSION [None]
  - CELLULITIS [None]
  - FIBROSIS [None]
  - NECROSIS [None]
  - INFLAMMATION [None]
  - BLADDER PERFORATION [None]
  - EXTRAVASATION [None]
